FAERS Safety Report 25929497 (Version 1)
Quarter: 2025Q4

REPORT INFORMATION
  Report Type: Spontaneous
  Country: CN (occurrence: CN)
  Receive Date: 20251016
  Receipt Date: 20251016
  Transmission Date: 20260118
  Serious: Yes (Hospitalization)
  Sender: ROCHE
  Company Number: CN-ROCHE-10000410588

PATIENT
  Age: 47 Year
  Sex: Female
  Weight: 45 kg

DRUGS (1)
  1. RITUXIMAB [Suspect]
     Active Substance: RITUXIMAB
     Indication: Autoimmune nodopathy
     Route: 042
     Dates: start: 20230313

REACTIONS (3)
  - Pneumonia [Unknown]
  - COVID-19 [Unknown]
  - Respiratory failure [Unknown]

NARRATIVE: CASE EVENT DATE: 20230330
